FAERS Safety Report 9995857 (Version 1)
Quarter: 2014Q1

REPORT INFORMATION
  Report Type: Spontaneous
  Country: US (occurrence: None)
  Receive Date: 20140218
  Receipt Date: 20140218
  Transmission Date: 20141002
  Serious: Yes (Other)
  Sender: FDA-Public Use
  Company Number: 1000052624

PATIENT
  Age: 64 Year
  Sex: Female

DRUGS (2)
  1. VIIBRYD [Suspect]
     Indication: DEPRESSION
     Dosage: 10 MG (10 MG, 1 IN 1 D), ORAL
     Route: 048
     Dates: start: 20131111, end: 20131118
  2. VIIBRYD (VILAZODONE HYDROCHLORIDE) (40 MILLIGRAM, TABLETS) [Suspect]
     Indication: DEPRESSION
     Dosage: 40 MG, (40 MG, 1 IN 1 D), ORAL
     Route: 048
     Dates: start: 20131126, end: 20131128

REACTIONS (6)
  - Constipation [None]
  - Insomnia [None]
  - Blepharospasm [None]
  - Muscle spasms [None]
  - Drug effect increased [None]
  - Psychomotor hyperactivity [None]
